FAERS Safety Report 19881379 (Version 3)
Quarter: 2023Q1

REPORT INFORMATION
  Report Type: Report from Study
  Country: US (occurrence: US)
  Receive Date: 20210924
  Receipt Date: 20230227
  Transmission Date: 20230417
  Serious: No
  Sender: FDA-Public Use
  Company Number: US-IPSEN BIOPHARMACEUTICALS, INC.-2021-22922

PATIENT
  Age: 62 Year
  Sex: Male

DRUGS (1)
  1. SOMATULINE DEPOT [Suspect]
     Active Substance: LANREOTIDE ACETATE
     Indication: Neuroendocrine tumour
     Dosage: 120MG/0.5ML, EVERY FOUR WEEKS, DEEP SUBCUTANEOUS
     Route: 058
     Dates: start: 202007

REACTIONS (5)
  - Blood glucose fluctuation [Recovering/Resolving]
  - Asthenia [Recovering/Resolving]
  - Injection site pain [Recovering/Resolving]
  - Serum serotonin increased [Recovering/Resolving]
  - Cholelithiasis [Not Recovered/Not Resolved]
